FAERS Safety Report 5986029-0 (Version None)
Quarter: 2008Q4

REPORT INFORMATION
  Report Type: 
  Country: None (occurrence: None)
  Receive Date: 20081209
  Receipt Date: 20081202
  Transmission Date: 20090506
  Serious: Yes (Other)
  Sender: FDA-Public Use
  Company Number: US-JNJFOC-20081201303

PATIENT
  Sex: Female
  Weight: 87.09 kg

DRUGS (4)
  1. FENTANYL TRANSDERMAL SYSTEM [Suspect]
     Indication: MIGRAINE
     Route: 062
  2. LORTAB [Concomitant]
     Indication: BREAKTHROUGH PAIN
     Dosage: 5/500 MG EVERY 3 TO 4 DAYS
     Route: 048
  3. LANTUS [Concomitant]
     Indication: DIABETES MELLITUS
     Route: 058
  4. HUMALOG [Concomitant]
     Indication: DIABETES MELLITUS
     Route: 058

REACTIONS (6)
  - BLOOD CHOLESTEROL INCREASED [None]
  - CYSTITIS [None]
  - OFF LABEL USE [None]
  - PAIN [None]
  - THYROID DISORDER [None]
  - TREATMENT NONCOMPLIANCE [None]
